FAERS Safety Report 6007693-6 (Version None)
Quarter: 2008Q4

REPORT INFORMATION
  Report Type: 
  Country: None (occurrence: None)
  Receive Date: 20081217
  Receipt Date: 20080516
  Transmission Date: 20090506
  Serious: No
  Sender: FDA-Public Use
  Company Number: US-ASTRAZENECA-2008UW06969

PATIENT
  Age: 84 Year
  Sex: Female
  Weight: 80.9 kg

DRUGS (4)
  1. CRESTOR [Suspect]
     Indication: BLOOD CHOLESTEROL INCREASED
     Route: 048
     Dates: start: 20071126, end: 20071203
  2. ZETIA [Concomitant]
     Indication: LOW DENSITY LIPOPROTEIN INCREASED
     Route: 048
  3. ZETIA [Concomitant]
     Indication: BLOOD CHOLESTEROL INCREASED
     Route: 048
  4. MICARDIS [Concomitant]
     Indication: BLOOD PRESSURE INCREASED
     Dosage: 10 TO 40 MG
     Route: 048
     Dates: start: 20070101, end: 20080101

REACTIONS (4)
  - DEHYDRATION [None]
  - DYSPNOEA [None]
  - FEELING ABNORMAL [None]
  - POLLAKIURIA [None]
